FAERS Safety Report 5164172-6 (Version None)
Quarter: 2006Q4

REPORT INFORMATION
  Report Type: 
  Country: None (occurrence: None)
  Receive Date: 20060918
  Receipt Date: 20051121
  Transmission Date: 20070319
  Serious: Yes (Other)
  Sender: FDA-Public Use
  Company Number: US-JNJFOC-20051104153

PATIENT
  Age: 45 Year
  Sex: Female
  Weight: 81.6475 kg

DRUGS (7)
  1. TOPAMAX [Suspect]
     Indication: CONVULSION
     Dosage: 300 MG, IN 1 DAY, ORAL;  100 MG, 2 IN 1 DAY, ORAL
     Route: 048
     Dates: start: 20050820
  2. TOPAMAX [Suspect]
     Indication: CONVULSION
     Dosage: 300 MG, IN 1 DAY, ORAL;  100 MG, 2 IN 1 DAY, ORAL
     Route: 048
     Dates: start: 20050901
  3. ESTRADIOL [Concomitant]
  4. ZOLOFT [Concomitant]
  5. ZOCOR [Concomitant]
  6. VALIUM [Concomitant]
  7. NYSTATIN [Concomitant]

REACTIONS (7)
  - CANDIDIASIS [None]
  - DIARRHOEA [None]
  - DRY MOUTH [None]
  - DYSGEUSIA [None]
  - GINGIVAL PAIN [None]
  - SKIN ODOUR ABNORMAL [None]
  - WEIGHT DECREASED [None]
